FAERS Safety Report 9587025 (Version 1)
Quarter: 2013Q4

REPORT INFORMATION
  Report Type: Spontaneous
  Country: US (occurrence: US)
  Receive Date: 20131003
  Receipt Date: 20131003
  Transmission Date: 20140711
  Serious: Yes (Death)
  Sender: FDA-Public Use
  Company Number: US-PFIZER INC-2013279511

PATIENT
  Age: 54 Year
  Sex: Female

DRUGS (1)
  1. REVATIO [Suspect]
     Indication: PULMONARY HYPERTENSION
     Dosage: 20 MG, 3X/DAY
     Dates: start: 20130705, end: 20130903

REACTIONS (3)
  - Disease progression [Fatal]
  - Pulmonary hypertension [Fatal]
  - Multi-organ failure [Fatal]
